FAERS Safety Report 18106921 (Version 1)
Quarter: 2020Q3

REPORT INFORMATION
  Report Type: Spontaneous
  Country: US (occurrence: US)
  Receive Date: 20200803
  Receipt Date: 20200803
  Transmission Date: 20201103
  Serious: No
  Sender: FDA-Public Use
  Company Number: None

PATIENT
  Age: 25 Year
  Sex: Female
  Weight: 60 kg

DRUGS (1)
  1. ACETYLCYSTEINE. [Suspect]
     Active Substance: ACETYLCYSTEINE
     Indication: LIVER INJURY
     Dosage: ?          OTHER FREQUENCY:PER HOUR;?
     Route: 041
     Dates: start: 20200723, end: 20200726

REACTIONS (5)
  - Swelling of eyelid [None]
  - Blister [None]
  - Erythema [None]
  - Lip swelling [None]
  - Swollen tongue [None]

NARRATIVE: CASE EVENT DATE: 20200726
